FAERS Safety Report 19245061 (Version 1)
Quarter: 2021Q2

REPORT INFORMATION
  Report Type: Spontaneous
  Country: KR (occurrence: KR)
  Receive Date: 20210511
  Receipt Date: 20210511
  Transmission Date: 20210717
  Serious: Yes (Death)
  Sender: FDA-Public Use
  Company Number: KR-PFIZER INC-2021494889

PATIENT
  Age: 65 Year
  Sex: Female

DRUGS (2)
  1. ACECLOFENAC [Concomitant]
     Active Substance: ACECLOFENAC
  2. DIFLUCAN [Suspect]
     Active Substance: FLUCONAZOLE
     Dosage: 2 DF, 1X/DAY
     Dates: start: 20200708, end: 20200716

REACTIONS (1)
  - Toxic epidermal necrolysis [Fatal]
